FAERS Safety Report 7710064-5 (Version None)
Quarter: 2011Q3

REPORT INFORMATION
  Report Type: 
  Country: None (occurrence: None)
  Receive Date: 20110825
  Receipt Date: 20110818
  Transmission Date: 20111222
  Serious: Yes (Hospitalization, Other)
  Sender: FDA-Public Use
  Company Number: PHHY2011NL74816

PATIENT
  Age: 2 Month
  Sex: Female

DRUGS (1)
  1. PROPRANOLOL [Suspect]
     Indication: HAEMANGIOMA
     Dosage: 3 MG/KG, UNK

REACTIONS (4)
  - TONIC CLONIC MOVEMENTS [None]
  - STARING [None]
  - UNRESPONSIVE TO STIMULI [None]
  - BLOOD PRESSURE DIASTOLIC DECREASED [None]
